FAERS Safety Report 8125983-8 (Version None)
Quarter: 2012Q1

REPORT INFORMATION
  Report Type: 
  Country: None (occurrence: None)
  Receive Date: 20120209
  Receipt Date: 20111026
  Transmission Date: 20120608
  Serious: No
  Sender: FDA-Public Use
  Company Number: US-BAUSCH-2011BL007338

PATIENT
  Age: 69 Year
  Sex: Male

DRUGS (6)
  1. DICLOFENAC SODIUM [Suspect]
     Indication: PREOPERATIVE CARE
     Route: 047
     Dates: start: 20110901
  2. DICLOFENAC SODIUM [Suspect]
     Indication: POSTOPERATIVE CARE
     Route: 047
     Dates: start: 20110901
  3. DICLOFENAC SODIUM [Suspect]
     Route: 047
     Dates: start: 20111001
  4. DICLOFENAC SODIUM [Suspect]
     Route: 047
     Dates: start: 20111001
  5. CIPROFLOXACIN [Concomitant]
     Indication: PREOPERATIVE CARE
     Route: 047
  6. PRED FORTE [Concomitant]
     Indication: POSTOPERATIVE CARE
     Route: 047

REACTIONS (1)
  - EYE IRRITATION [None]
